FAERS Safety Report 16664461 (Version 1)
Quarter: 2019Q3

REPORT INFORMATION
  Report Type: Report from Study
  Country: HN (occurrence: HN)
  Receive Date: 20190802
  Receipt Date: 20190802
  Transmission Date: 20191004
  Serious: Yes (Death, Other)
  Sender: FDA-Public Use
  Company Number: HN-ELI_LILLY_AND_COMPANY-HN201902001482

PATIENT
  Age: 84 Year
  Sex: Male

DRUGS (1)
  1. CETUXIMAB. [Suspect]
     Active Substance: CETUXIMAB
     Indication: HEAD AND NECK CANCER
     Dosage: 362 MG, EVERY 2 MONTHS
     Route: 042
     Dates: start: 20180830, end: 20190103

REACTIONS (8)
  - Cholelithiasis [Unknown]
  - Weight decreased [Unknown]
  - Peripheral swelling [Unknown]
  - Gallbladder rupture [Fatal]
  - Cachexia [Unknown]
  - Tracheostomy infection [Unknown]
  - General physical health deterioration [Unknown]
  - Off label use [Unknown]

NARRATIVE: CASE EVENT DATE: 20190309
